FAERS Safety Report 6112560-3 (Version None)
Quarter: 2009Q1

REPORT INFORMATION
  Report Type: 
  Country: None (occurrence: None)
  Receive Date: 20090312
  Receipt Date: 20090227
  Transmission Date: 20090719
  Serious: Yes (Hospitalization)
  Sender: FDA-Public Use
  Company Number: DE-ELI_LILLY_AND_COMPANY-DE200902002889

PATIENT
  Sex: Female
  Weight: 101 kg

DRUGS (8)
  1. EXENATIDE [Suspect]
     Indication: TYPE 2 DIABETES MELLITUS
     Dosage: 10 UG, UNKNOWN
     Route: 065
     Dates: start: 20061024
  2. EXENATIDE [Suspect]
     Dosage: 20 UG, UNKNOWN
     Route: 065
  3. METFORMIN HCL [Suspect]
     Indication: TYPE 2 DIABETES MELLITUS
     Dosage: 2550 MG, UNKNOWN
     Route: 065
     Dates: start: 20020101
  4. NOVODIGAL [Concomitant]
     Indication: CARDIAC FAILURE
     Dosage: UNK, UNKNOWN
     Route: 065
     Dates: start: 19860101
  5. METOPROLOL [Concomitant]
     Indication: HYPERTENSION
     Dosage: UNK, UNKNOWN
     Route: 065
     Dates: start: 20000101
  6. NOVALGIN [Concomitant]
     Indication: BACK PAIN
     Dosage: UNK, UNKNOWN
     Route: 065
  7. HYDROCHLORZIDE [Concomitant]
     Indication: HYPERTENSION
     Dosage: UNK, UNKNOWN
     Route: 065
     Dates: start: 20071017
  8. LISINOPRIL [Concomitant]
     Indication: HYPERTENSION
     Dosage: UNK, UNKNOWN
     Route: 065
     Dates: start: 20071017

REACTIONS (1)
  - GALLBLADDER CANCER [None]
